FAERS Safety Report 5089561-X (Version None)
Quarter: 2006Q3

REPORT INFORMATION
  Report Type: 
  Country: None (occurrence: None)
  Receive Date: 20060727
  Receipt Date: 20060606
  Transmission Date: 20061208
  Serious: Yes (Other)
  Sender: FDA-Public Use
  Company Number: 2006073821

PATIENT
  Age: 51 Year
  Sex: Female
  Weight: 106.5953 kg

DRUGS (3)
  1. LYRICA [Suspect]
     Indication: PAIN
     Dosage: 150 MG  (50 MG, 3 IN 1 D), ORAL
     Route: 048
     Dates: start: 20060101
  2. HYDROCHLOROTHIAZIDE WITH TRIAMTERENE (HYDROCHLOROTHIAZIDE, TRIAMTERENE [Concomitant]
  3. CYMBALTA [Concomitant]

REACTIONS (4)
  - DRUG INEFFECTIVE [None]
  - JOINT SPRAIN [None]
  - SOMNOLENCE [None]
  - WEIGHT INCREASED [None]
